FAERS Safety Report 21383528 (Version 2)
Quarter: 2022Q4

REPORT INFORMATION
  Report Type: Spontaneous
  Country: US (occurrence: US)
  Receive Date: 20220927
  Receipt Date: 20221031
  Transmission Date: 20230113
  Serious: Yes (Other)
  Sender: FDA-Public Use
  Company Number: US-BRISTOL-MYERS SQUIBB COMPANY-2022-087767

PATIENT
  Age: 68 Year
  Sex: Female

DRUGS (1)
  1. POMALYST [Suspect]
     Active Substance: POMALIDOMIDE
     Indication: Plasma cell myeloma in remission
     Dosage: B.NO: C2514A; EXP:DATE: 31-JAN-2026
     Route: 048
     Dates: start: 202208

REACTIONS (2)
  - Neuropathy peripheral [Unknown]
  - Tinnitus [Unknown]

NARRATIVE: CASE EVENT DATE: 20220801
